FAERS Safety Report 4817576-2 (Version None)
Quarter: 2005Q4

REPORT INFORMATION
  Report Type: 
  Country: None (occurrence: None)
  Receive Date: 20051031
  Receipt Date: 20051020
  Transmission Date: 20060501
  Serious: Yes (Hospitalization)
  Sender: FDA-Public Use
  Company Number: 2004-05-1994

PATIENT
  Age: 58 Year
  Sex: Male
  Weight: 62 kg

DRUGS (4)
  1. INTRON A [Suspect]
     Indication: HEPATITIS C
     Dosage: 6-3MU 6-3X/W* INTRAMUSCULAR
     Route: 030
     Dates: start: 20020430, end: 20020512
  2. INTRON A [Suspect]
     Indication: HEPATITIS C
     Dosage: 6-3MU 6-3X/W* INTRAMUSCULAR
     Route: 030
     Dates: start: 20020513, end: 20020526
  3. INTRON A [Suspect]
     Indication: HEPATITIS C
     Dosage: 6-3MU 6-3X/W* INTRAMUSCULAR
     Route: 030
     Dates: start: 20020527, end: 20021011
  4. REBETOL [Suspect]
     Indication: HEPATITIS C
     Dosage: 800 MG QD ORAL
     Route: 048
     Dates: start: 20020430, end: 20021011

REACTIONS (15)
  - ANTI-THYROID ANTIBODY POSITIVE [None]
  - ASTHENIA [None]
  - AUTOIMMUNE DISORDER [None]
  - BLOOD CREATINE PHOSPHOKINASE INCREASED [None]
  - BLOOD THYROID STIMULATING HORMONE INCREASED [None]
  - FATIGUE [None]
  - HYPOTHYROIDISM [None]
  - MUSCLE ATROPHY [None]
  - MUSCLE HYPERTROPHY [None]
  - MUSCULAR WEAKNESS [None]
  - MYOPATHY [None]
  - NERVE CONDUCTION STUDIES ABNORMAL [None]
  - REFLEXES ABNORMAL [None]
  - SWELLING [None]
  - THYROID ATROPHY [None]
